FAERS Safety Report 12745293 (Version 1)
Quarter: 2016Q3

REPORT INFORMATION
  Report Type: Spontaneous
  Country: US (occurrence: US)
  Receive Date: 20160914
  Receipt Date: 20160914
  Transmission Date: 20161109
  Serious: Yes (Life-Threatening, Hospitalization)
  Sender: FDA-Public Use
  Company Number: None

PATIENT
  Age: 39 Year
  Sex: Female
  Weight: 60.75 kg

DRUGS (1)
  1. AZITHROMYCIN ANHYDROUS. [Suspect]
     Active Substance: AZITHROMYCIN ANHYDROUS
     Indication: TONSILLITIS
     Route: 048
     Dates: start: 20160721, end: 20160725

REACTIONS (6)
  - Dyspnoea [None]
  - Feeling abnormal [None]
  - Gait disturbance [None]
  - Dizziness [None]
  - Hypoaesthesia [None]
  - Heart rate increased [None]

NARRATIVE: CASE EVENT DATE: 20160721
